FAERS Safety Report 16133429 (Version 1)
Quarter: 2019Q1

REPORT INFORMATION
  Report Type: Spontaneous
  Country: SK (occurrence: SK)
  Receive Date: 20190329
  Receipt Date: 20190329
  Transmission Date: 20190418
  Serious: Yes (Hospitalization)
  Sender: FDA-Public Use
  Company Number: SK-FERRINGPH-2019FE01604

PATIENT

DRUGS (2)
  1. MINIRIN [Suspect]
     Active Substance: DESMOPRESSIN ACETATE
     Indication: ENURESIS
     Dosage: 240 ?G DAILY (0-0-1 BEFORE SLEEPING)
     Route: 048
     Dates: start: 20181001, end: 20190214
  2. EURIN [Suspect]
     Active Substance: OXYBUTYNIN CHLORIDE
     Indication: ENURESIS
     Dosage: 5 MG DAILY (0-0-1 AT 5:00 P.M.)
     Route: 048
     Dates: start: 20181001, end: 20190214

REACTIONS (2)
  - Hyponatraemia [Recovered/Resolved]
  - Body temperature increased [Recovered/Resolved]

NARRATIVE: CASE EVENT DATE: 20190214
